FAERS Safety Report 4995523-0 (Version None)
Quarter: 2006Q2

REPORT INFORMATION
  Report Type: 
  Country: None (occurrence: None)
  Receive Date: 20060508
  Receipt Date: 20060303
  Transmission Date: 20061013
  Serious: Yes (Hospitalization)
  Sender: FDA-Public Use
  Company Number: DE-ROCHE-439071

PATIENT
  Age: 30 Year
  Sex: Male
  Weight: 80 kg

DRUGS (4)
  1. PEG-INTERFERON ALFA 2A (RO 25-8310) [Suspect]
     Route: 058
     Dates: start: 20050311, end: 20060306
  2. RIBAVIRIN [Suspect]
     Route: 048
     Dates: start: 20050311, end: 20060306
  3. AMANTADINE HCL [Suspect]
     Route: 048
     Dates: start: 20050225, end: 20051021
  4. CITALOPRAM [Suspect]
     Indication: DEPRESSION
     Route: 048
     Dates: start: 20050306

REACTIONS (4)
  - GASTRITIS [None]
  - ILEITIS [None]
  - RED BLOOD CELL SEDIMENTATION RATE INCREASED [None]
  - REFLUX OESOPHAGITIS [None]
